FAERS Safety Report 5786579-6 (Version None)
Quarter: 2008Q2

REPORT INFORMATION
  Report Type: 
  Country: None (occurrence: None)
  Receive Date: 20080624
  Receipt Date: 20080613
  Transmission Date: 20081010
  Serious: Yes (Other)
  Sender: FDA-Public Use
  Company Number: SE-PFIZER INC-2008049859

PATIENT
  Age: 72 Year
  Sex: Female

DRUGS (4)
  1. PREDNISOLONE [Suspect]
     Indication: ARTHRITIS
     Dosage: DAILY DOSE:150MG
  2. PREDNISOLONE [Suspect]
     Dosage: DAILY DOSE:17.5MG
  3. PREDNISOLONE [Suspect]
     Dosage: DAILY DOSE:160MG
  4. LYRICA [Concomitant]
     Indication: PAIN

REACTIONS (1)
  - MUSCLE ATROPHY [None]
